FAERS Safety Report 8560832-5 (Version None)
Quarter: 2012Q3

REPORT INFORMATION
  Report Type: 
  Country: None (occurrence: None)
  Receive Date: 20120727
  Receipt Date: 20120727
  Transmission Date: 20120928
  Serious: Yes (Hospitalization)
  Sender: FDA-Public Use
  Company Number: None

PATIENT
  Age: 86 Year
  Sex: Female
  Weight: 38 kg

DRUGS (6)
  1. WARFARIN SODIUM [Concomitant]
  2. CALCIUM + D [Concomitant]
  3. AMIODARONE HCL [Concomitant]
  4. MOMETASONE FUROATE [Concomitant]
  5. METOPROLOL SUCCINATE [Suspect]
     Indication: HYPERTENSION
     Dosage: 25MG PO  CHRONIC
     Route: 048
  6. ERGOCALCIFEROL [Concomitant]

REACTIONS (3)
  - NAUSEA [None]
  - SINUS BRADYCARDIA [None]
  - ATRIOVENTRICULAR BLOCK FIRST DEGREE [None]
